FAERS Safety Report 9599684 (Version 2)
Quarter: 2013Q4

REPORT INFORMATION
  Report Type: Spontaneous
  Country: US (occurrence: US)
  Receive Date: 20131004
  Receipt Date: 20131004
  Transmission Date: 20140711
  Serious: No
  Sender: FDA-Public Use
  Company Number: US-AMGEN-USASP2013026251

PATIENT
  Age: 38 Year
  Sex: Female
  Weight: 109.75 kg

DRUGS (2)
  1. ENBREL [Suspect]
     Indication: RHEUMATOID ARTHRITIS
     Dosage: 50 MG, QWK
     Route: 058
     Dates: start: 20130107
  2. METHOTREXATE [Concomitant]
     Dosage: UNK

REACTIONS (2)
  - Local swelling [Not Recovered/Not Resolved]
  - Vulvovaginal mycotic infection [Recovering/Resolving]
